FAERS Safety Report 15818665 (Version 1)
Quarter: 2019Q1

REPORT INFORMATION
  Report Type: Spontaneous
  Country: FR (occurrence: FR)
  Receive Date: 20190113
  Receipt Date: 20190113
  Transmission Date: 20190417
  Serious: Yes (Hospitalization)
  Sender: FDA-Public Use
  Company Number: PHHY2019FR004281

PATIENT
  Age: 57 Year
  Sex: Female

DRUGS (2)
  1. FEMARA [Suspect]
     Active Substance: LETROZOLE
     Indication: BREAST CANCER
     Dosage: UNK
     Route: 065
  2. COUMADINE [Suspect]
     Active Substance: WARFARIN SODIUM
     Indication: CARDIAC DISORDER
     Dosage: 1 DF, UNK  (1 UG/LITRE)
     Route: 065

REACTIONS (3)
  - Pain [Unknown]
  - Cardiac disorder [Unknown]
  - Movement disorder [Unknown]

NARRATIVE: CASE EVENT DATE: 201811
